FAERS Safety Report 5489403-4 (Version None)
Quarter: 2007Q4

REPORT INFORMATION
  Report Type: 
  Country: None (occurrence: None)
  Receive Date: 20071018
  Receipt Date: 20071012
  Transmission Date: 20080405
  Serious: Yes (Other)
  Sender: FDA-Public Use
  Company Number: CA-ASTRAZENECA-2007UW23994

PATIENT
  Age: 50 Year
  Sex: Male

DRUGS (5)
  1. SEROQUEL [Suspect]
     Route: 048
  2. ANDROGEL [Concomitant]
  3. CALCIUM + VITAMIN D [Concomitant]
  4. CELEBREX [Concomitant]
  5. NEXIUM [Concomitant]

REACTIONS (3)
  - AGITATION [None]
  - DRUG DEPENDENCE [None]
  - INSOMNIA [None]
